FAERS Safety Report 5027644-0 (Version None)
Quarter: 2006Q2

REPORT INFORMATION
  Report Type: 
  Country: None (occurrence: None)
  Receive Date: 20060616
  Receipt Date: 20060607
  Transmission Date: 20061013
  Serious: Yes (Hospitalization)
  Sender: FDA-Public Use
  Company Number: FR-ABBOTT-06P-056-0335518-00

PATIENT
  Age: 36 Year
  Sex: Male
  Weight: 87 kg

DRUGS (16)
  1. KALETRA [Suspect]
     Indication: HIV INFECTION
     Route: 048
  2. VINBLASTINE SULFATE [Interacting]
     Indication: HODGKIN'S DISEASE
     Route: 042
     Dates: start: 20060224
  3. VINBLASTINE SULFATE [Interacting]
     Dates: end: 20060227
  4. BLEOMYCIN [Concomitant]
     Indication: HODGKIN'S DISEASE
     Route: 042
     Dates: start: 20060224, end: 20060227
  5. DOLASETRON [Concomitant]
     Indication: HODGKIN'S DISEASE
     Route: 042
     Dates: start: 20060224, end: 20060227
  6. DOXORUBICINE [Concomitant]
     Indication: HODGKIN'S DISEASE
     Route: 042
     Dates: start: 20060224, end: 20060227
  7. DACARBAZINE [Concomitant]
     Indication: HODGKIN'S DISEASE
     Route: 042
     Dates: start: 20060224, end: 20060227
  8. PENTAMIDINE ISETHIONATE [Concomitant]
     Indication: ANTIBIOTIC PROPHYLAXIS
  9. CLINDAMYCIN [Concomitant]
     Indication: ANTIBIOTIC PROPHYLAXIS
  10. PYRIMETHAMINE TAB [Concomitant]
     Indication: ANTIBIOTIC PROPHYLAXIS
  11. LAMIVUDINE [Concomitant]
     Indication: HIV INFECTION
  12. TENOFOVIR [Concomitant]
     Indication: HIV INFECTION
  13. ENFUVIRTIDE [Concomitant]
     Indication: HIV INFECTION
  14. CHEMOTHERAPY [Concomitant]
     Indication: DRUG USE FOR UNKNOWN INDICATION
     Dates: start: 20060224
  15. PREDNISONE [Concomitant]
     Indication: DRUG USE FOR UNKNOWN INDICATION
     Dates: start: 20060224
  16. ADRIAMYCIN PFS [Concomitant]
     Indication: DRUG USE FOR UNKNOWN INDICATION
     Dates: start: 20060224

REACTIONS (2)
  - APLASIA [None]
  - DRUG INTERACTION [None]
